FAERS Safety Report 9168522 (Version 2)
Quarter: 2013Q1

REPORT INFORMATION
  Report Type: Spontaneous
  Country: US (occurrence: US)
  Receive Date: 20130318
  Receipt Date: 20130329
  Transmission Date: 20140127
  Serious: No
  Sender: FDA-Public Use
  Company Number: US-009507513-1303USA007169

PATIENT
  Age: 55 Year
  Sex: Female

DRUGS (4)
  1. VICTRELIS [Suspect]
     Dosage: UNK
     Route: 065
     Dates: start: 20120912
  2. COPEGUS [Suspect]
     Dosage: 1200 MG, QD
     Dates: start: 20120727
  3. COPEGUS [Suspect]
     Dosage: 600 MG, QD
     Route: 065
  4. PEGASYS [Suspect]
     Dosage: 180 MICROGRAM, QW
     Dates: start: 20120727

REACTIONS (10)
  - Headache [Unknown]
  - White blood cell count decreased [Unknown]
  - Dyspnoea [Unknown]
  - Pruritus [Unknown]
  - Red blood cell count decreased [Unknown]
  - Fatigue [Unknown]
  - Anaemia [Unknown]
  - Alopecia [Not Recovered/Not Resolved]
  - Dry skin [Unknown]
  - Rash [Not Recovered/Not Resolved]
